FAERS Safety Report 4631475-0 (Version None)
Quarter: 2005Q2

REPORT INFORMATION
  Report Type: 
  Country: None (occurrence: None)
  Receive Date: 20050407
  Receipt Date: 20050311
  Transmission Date: 20051028
  Serious: Yes (Hospitalization, Congenital Anomaly)
  Sender: FDA-Public Use
  Company Number: 2005AP01698

PATIENT
  Age: 27 Year
  Sex: Female

DRUGS (5)
  1. INDERAL [Suspect]
     Indication: LONG QT SYNDROME CONGENITAL
     Dosage: 30 MG
     Route: 048
     Dates: start: 20031101, end: 20040910
  2. INDERAL [Suspect]
     Indication: LONG QT SYNDROME CONGENITAL
     Dosage: 30 MG
     Route: 048
     Dates: start: 20040914
  3. MAGNESIUM SULFATE [Concomitant]
  4. MARCAINE [Concomitant]
  5. FENTANEST (FENTANYL CITRATE) [Concomitant]

REACTIONS (3)
  - DRUG EXPOSURE DURING PREGNANCY [None]
  - PREGNANCY [None]
  - THREATENED LABOUR [None]
